FAERS Safety Report 7105641-9 (Version None)
Quarter: 2010Q4

REPORT INFORMATION
  Report Type: 
  Country: None (occurrence: None)
  Receive Date: 20101116
  Receipt Date: 20101104
  Transmission Date: 20110411
  Serious: Yes (Hospitalization, Other)
  Sender: FDA-Public Use
  Company Number: BR-ACTELION-A-CH2010-40721

PATIENT
  Sex: Female
  Weight: 55 kg

DRUGS (5)
  1. TRACLEER [Suspect]
     Indication: PULMONARY ARTERIAL HYPERTENSION
     Dosage: 125 MG, BID
     Route: 048
  2. TRACLEER [Suspect]
     Dosage: 62.5 MG, BID
     Route: 048
     Dates: start: 20090101
  3. NIFEDIPINE [Suspect]
     Dosage: 20 MG, OD
     Dates: start: 20050101
  4. CAPTOPRIL [Suspect]
     Dosage: 50 MG, OD
     Dates: start: 20050101
  5. PENTOXIFYLLINE [Suspect]
     Dosage: 800 MG, OD
     Dates: start: 20050101

REACTIONS (2)
  - CHEST PAIN [None]
  - PERICARDITIS [None]
